FAERS Safety Report 12364260 (Version 1)
Quarter: 2016Q2

REPORT INFORMATION
  Report Type: Report from Study
  Country: ES (occurrence: ES)
  Receive Date: 20160512
  Receipt Date: 20160512
  Transmission Date: 20160815
  Serious: Yes (Hospitalization)
  Sender: FDA-Public Use
  Company Number: ES-ABBVIE-16P-144-1598229-00

PATIENT
  Sex: Male
  Weight: 92 kg

DRUGS (2)
  1. VIEKIRAX [Suspect]
     Active Substance: OMBITASVIR\PARITAPREVIR\RITONAVIR
     Indication: HEPATITIS C
     Route: 048
     Dates: start: 20160322
  2. EXVIERA [Suspect]
     Active Substance: DASABUVIR
     Indication: HEPATITIS C
     Route: 048
     Dates: start: 20160322

REACTIONS (5)
  - Ear infection [Recovering/Resolving]
  - Weight decreased [Not Recovered/Not Resolved]
  - Pharyngeal abscess [Recovered/Resolved]
  - Pharyngitis [Recovering/Resolving]
  - Tonsillitis [Recovered/Resolved]

NARRATIVE: CASE EVENT DATE: 20160322
